FAERS Safety Report 25962791 (Version 1)
Quarter: 2025Q4

REPORT INFORMATION
  Report Type: Spontaneous
  Country: US (occurrence: US)
  Receive Date: 20251027
  Receipt Date: 20251027
  Transmission Date: 20260117
  Serious: Yes (Death)
  Sender: MYLAN
  Company Number: US-MYLANLABS-2025M1088959

PATIENT
  Age: 62 Year
  Sex: Male

DRUGS (16)
  1. OCTREOTIDE ACETATE [Suspect]
     Active Substance: OCTREOTIDE ACETATE
     Indication: Phaeochromocytoma
     Dosage: 30 MILLIGRAM, MONTHLY
  2. OCTREOTIDE ACETATE [Suspect]
     Active Substance: OCTREOTIDE ACETATE
     Indication: Metastasis
  3. CYCLOPHOSPHAMIDE [Suspect]
     Active Substance: CYCLOPHOSPHAMIDE
     Indication: Phaeochromocytoma
     Dosage: UNK, FOR 32 CYCLES OVER 3 YEARS
  4. CYCLOPHOSPHAMIDE [Suspect]
     Active Substance: CYCLOPHOSPHAMIDE
     Indication: Metastasis
  5. VINCRISTINE [Suspect]
     Active Substance: VINCRISTINE
     Indication: Phaeochromocytoma
     Dosage: UNK, FOR 32 CYCLES OVER 3 YEARS
  6. VINCRISTINE [Suspect]
     Active Substance: VINCRISTINE
     Indication: Metastasis
  7. DACARBAZINE [Suspect]
     Active Substance: DACARBAZINE
     Indication: Phaeochromocytoma
     Dosage: UNK, FOR 32 CYCLES OVER 3 YEARS
  8. DACARBAZINE [Suspect]
     Active Substance: DACARBAZINE
     Indication: Metastasis
  9. TEMOZOLOMIDE [Suspect]
     Active Substance: TEMOZOLOMIDE
     Indication: Phaeochromocytoma
     Dosage: 150 MILLIGRAM/SQ. METER, QD, FOR 5 DAYS OF EACH 28-DAY CYCLE
  10. TEMOZOLOMIDE [Suspect]
     Active Substance: TEMOZOLOMIDE
     Indication: Metastasis
  11. DENOSUMAB [Suspect]
     Active Substance: DENOSUMAB
     Indication: Metastases to bone
     Dosage: 120 MILLIGRAM, MONTHLY
     Dates: start: 201702
  12. DENOSUMAB [Suspect]
     Active Substance: DENOSUMAB
     Indication: Phaeochromocytoma
  13. LUTATHERA [Suspect]
     Active Substance: LUTETIUM OXODOTREOTIDE LU-177
     Indication: Phaeochromocytoma
     Dosage: UNK
  14. LUTATHERA [Suspect]
     Active Substance: LUTETIUM OXODOTREOTIDE LU-177
     Indication: Paraganglion neoplasm malignant
  15. LUTATHERA [Suspect]
     Active Substance: LUTETIUM OXODOTREOTIDE LU-177
     Indication: Metastasis
  16. LUTATHERA [Suspect]
     Active Substance: LUTETIUM OXODOTREOTIDE LU-177
     Indication: Metastasis

REACTIONS (2)
  - Drug ineffective [Fatal]
  - Disease progression [Fatal]
